FAERS Safety Report 25480536 (Version 2)
Quarter: 2025Q3

REPORT INFORMATION
  Report Type: Spontaneous
  Country: CA (occurrence: CA)
  Receive Date: 20250625
  Receipt Date: 20250813
  Transmission Date: 20251021
  Serious: Yes (Hospitalization, Other)
  Sender: SANOFI AVENTIS
  Company Number: CA-SA-2025SA178995

PATIENT
  Age: 12 Year
  Sex: Male
  Weight: 43.6 kg

DRUGS (25)
  1. ALEMTUZUMAB [Suspect]
     Active Substance: ALEMTUZUMAB
     Indication: Bone marrow transplant
     Route: 042
     Dates: start: 20241203, end: 20241205
  2. FLUDARABINE [Suspect]
     Active Substance: FLUDARABINE PHOSPHATE
     Indication: Bone marrow transplant
     Route: 042
     Dates: start: 20241204, end: 20241205
  3. BUSULFAN [Suspect]
     Active Substance: BUSULFAN
     Indication: Bone marrow transplant
     Route: 042
  4. ACETAMINOPHEN [Concomitant]
     Active Substance: ACETAMINOPHEN
     Dates: start: 20241202, end: 20241230
  5. AMLODIPINE [Concomitant]
     Active Substance: AMLODIPINE BESYLATE
     Dates: start: 20241201, end: 20241230
  6. AMOXICILLIN [Concomitant]
     Active Substance: AMOXICILLIN
     Dates: start: 20241202, end: 20241230
  7. CEFTAZIDIME [Concomitant]
     Active Substance: CEFTAZIDIME
     Dates: start: 20241202, end: 20241230
  8. CHOLECALCIFEROL [Concomitant]
     Active Substance: CHOLECALCIFEROL
     Dates: start: 20241202, end: 20241230
  9. DIPHENHYDRAMINE [Concomitant]
     Active Substance: DIPHENHYDRAMINE
     Dates: start: 20241202, end: 20241230
  10. FAMOTIDINE [Concomitant]
     Active Substance: FAMOTIDINE
     Dates: start: 20241202, end: 20241230
  11. FOSCARNET SODIUM [Concomitant]
     Active Substance: FOSCARNET SODIUM
     Route: 042
     Dates: start: 20241202, end: 20241230
  12. HYDROCORTISONE [Concomitant]
     Active Substance: HYDROCORTISONE
     Route: 030
     Dates: start: 20241202, end: 20241230
  13. LEVETIRACETAM [Concomitant]
     Active Substance: LEVETIRACETAM
     Dates: start: 20241202, end: 20241230
  14. MAGNESIUM [Concomitant]
     Active Substance: MAGNESIUM
     Dates: start: 20241202, end: 20241230
  15. METHYLPREDNISOLONE [Concomitant]
     Active Substance: METHYLPREDNISOLONE
     Dates: start: 20241202, end: 20241230
  16. MYCOPHENOLATE MOFETIL [Concomitant]
     Active Substance: MYCOPHENOLATE MOFETIL
     Dates: start: 20241202, end: 20241230
  17. ONDANSETRON [Concomitant]
     Active Substance: ONDANSETRON
     Dates: start: 20241202, end: 20241230
  18. PENTAMIDINE ISETHIONATE [Concomitant]
     Active Substance: PENTAMIDINE ISETHIONATE
     Dates: start: 20241202, end: 20241230
  19. POSACONAZOLE [Concomitant]
     Active Substance: POSACONAZOLE
     Dates: start: 20241202, end: 20241230
  20. POTASSIUM [Concomitant]
     Active Substance: POTASSIUM
     Route: 042
     Dates: start: 20241202, end: 20241230
  21. PREDNISONE [Concomitant]
     Active Substance: PREDNISONE
     Dates: start: 20241202, end: 20241230
  22. PREVYMIS [Concomitant]
     Active Substance: LETERMOVIR
     Dates: start: 20241202, end: 20241230
  23. TACROLIMUS [Concomitant]
     Active Substance: TACROLIMUS
     Dates: start: 20241202, end: 20241230
  24. URSODIOL [Concomitant]
     Active Substance: URSODIOL
     Dates: start: 20241202, end: 20241230
  25. VALACYCLOVIR [Concomitant]
     Active Substance: VALACYCLOVIR HYDROCHLORIDE
     Dates: start: 20241202, end: 20241230

REACTIONS (6)
  - Febrile neutropenia [Recovered/Resolved]
  - Mucosal inflammation [Recovered/Resolved]
  - Oral pain [Recovered/Resolved]
  - Oropharyngeal pain [Recovered/Resolved]
  - Aplastic anaemia [Recovered/Resolved]
  - Thrombocytopenia [Recovered/Resolved]

NARRATIVE: CASE EVENT DATE: 20241216
